FAERS Safety Report 7085433-X (Version None)
Quarter: 2010Q4

REPORT INFORMATION
  Report Type: 
  Country: None (occurrence: None)
  Receive Date: 20101105
  Receipt Date: 20101101
  Transmission Date: 20110411
  Serious: Yes (Other)
  Sender: FDA-Public Use
  Company Number: US-PFIZER INC-2010139371

PATIENT
  Sex: Female

DRUGS (4)
  1. TOVIAZ [Suspect]
     Dosage: UNK
  2. XANAX [Suspect]
     Dosage: UNK
  3. LEXAPRO [Suspect]
     Dosage: UNK
  4. LEVAQUIN [Suspect]
     Dosage: UNK

REACTIONS (1)
  - CATARACT [None]
